FAERS Safety Report 5366420-6 (Version None)
Quarter: 2007Q2

REPORT INFORMATION
  Report Type: 
  Country: None (occurrence: None)
  Receive Date: 20070619
  Receipt Date: 20070612
  Transmission Date: 20071010
  Serious: Yes (Death, Other)
  Sender: FDA-Public Use
  Company Number: 163-21880-06050905

PATIENT
  Age: 68 Year
  Sex: Female

DRUGS (8)
  1. REVLIMID [Suspect]
     Indication: MYELODYSPLASTIC SYNDROME
     Dosage: SEE IMAGE
     Route: 048
     Dates: start: 20060608, end: 20060727
  2. REVLIMID [Suspect]
     Indication: MYELODYSPLASTIC SYNDROME
     Dosage: SEE IMAGE
     Route: 048
     Dates: start: 20060802, end: 20060906
  3. REVLIMID [Suspect]
     Indication: MYELODYSPLASTIC SYNDROME
     Dosage: SEE IMAGE
     Route: 048
     Dates: start: 20060330
  4. DIOVAN [Concomitant]
  5. THYROID TAB [Concomitant]
  6. ARANESP [Concomitant]
  7. NEULASTA [Concomitant]
  8. PRBC (BLOOD CELLS, PACKED HUMAN) [Concomitant]

REACTIONS (4)
  - ACUTE MYELOID LEUKAEMIA [None]
  - HAEMORRHAGE INTRACRANIAL [None]
  - MALIGNANT NEOPLASM PROGRESSION [None]
  - REFUSAL OF TREATMENT BY PATIENT [None]
